FAERS Safety Report 15250698 (Version 1)
Quarter: 2018Q3

REPORT INFORMATION
  Report Type: Spontaneous
  Country: US (occurrence: US)
  Receive Date: 20180716
  Receipt Date: 20180716
  Transmission Date: 20181010
  Serious: Yes (Life-Threatening, Hospitalization)
  Sender: FDA-Public Use
  Company Number: None

PATIENT
  Age: 2 Week
  Sex: Male
  Weight: 3 kg

DRUGS (2)
  1. POLY?RI?SOL [Concomitant]
  2. SUBOXONE [Suspect]
     Active Substance: BUPRENORPHINE HYDROCHLORIDE\NALOXONE HYDROCHLORIDE
     Indication: DRUG DEPENDENCE
     Dates: end: 20180623

REACTIONS (4)
  - Bradycardia neonatal [None]
  - Miosis [None]
  - Maternal drugs affecting foetus [None]
  - Exposure via breast milk [None]

NARRATIVE: CASE EVENT DATE: 20180623
